FAERS Safety Report 16322923 (Version 1)
Quarter: 2019Q2

REPORT INFORMATION
  Report Type: Spontaneous
  Country: SE (occurrence: SE)
  Receive Date: 20190516
  Receipt Date: 20190516
  Transmission Date: 20190711
  Serious: Yes (Life-Threatening, Hospitalization)
  Sender: FDA-Public Use
  Company Number: SE-009507513-1905SWE006213

PATIENT
  Age: 64 Year
  Sex: Male

DRUGS (10)
  1. CALCITUGG [Concomitant]
  2. BETOLVEX [Concomitant]
     Active Substance: CYANOCOBALAMIN
  3. OXYNORM [Concomitant]
     Active Substance: OXYCODONE HYDROCHLORIDE
  4. ETALPHA [Concomitant]
     Active Substance: ALFACALCIDOL
  5. CUBICIN [Suspect]
     Active Substance: DAPTOMYCIN
     Indication: STAPHYLOCOCCAL SEPSIS
     Dosage: 700 MILLIGRAM, QD
     Route: 042
     Dates: start: 20190319, end: 20190329
  6. CUBICIN [Suspect]
     Active Substance: DAPTOMYCIN
     Indication: DEVICE RELATED INFECTION
  7. SMOFKABIVEN [Concomitant]
     Active Substance: AMINO ACIDS\DEXTROSE\ELECTROLYTES NOS\SOYBEAN OIL
     Dates: end: 20190321
  8. CUBICIN [Suspect]
     Active Substance: DAPTOMYCIN
     Indication: ABSCESS SOFT TISSUE
  9. FURIX (FUROSEMIDE) [Concomitant]
     Active Substance: FUROSEMIDE
  10. KALEORID [Concomitant]
     Active Substance: POTASSIUM CHLORIDE

REACTIONS (1)
  - Interstitial lung disease [Recovered/Resolved]

NARRATIVE: CASE EVENT DATE: 20190326
